FAERS Safety Report 19667219 (Version 1)
Quarter: 2021Q3

REPORT INFORMATION
  Report Type: Spontaneous
  Country: US (occurrence: US)
  Receive Date: 20210806
  Receipt Date: 20210806
  Transmission Date: 20211014
  Serious: No
  Sender: FDA-Public Use
  Company Number: US-AMGEN-USASP2021119181

PATIENT

DRUGS (7)
  1. SOTALOL. [Concomitant]
     Active Substance: SOTALOL
     Indication: TACHYARRHYTHMIA
  2. DILTIAZEM. [Concomitant]
     Active Substance: DILTIAZEM
     Indication: TACHYARRHYTHMIA
  3. DIGOXIN. [Concomitant]
     Active Substance: DIGOXIN
     Indication: TACHYARRHYTHMIA
  4. PRECEDEX [Concomitant]
     Active Substance: DEXMEDETOMIDINE HYDROCHLORIDE
     Indication: TACHYARRHYTHMIA
  5. AMIODARONE [Concomitant]
     Active Substance: AMIODARONE
     Indication: TACHYARRHYTHMIA
  6. IVABRADINE [Suspect]
     Active Substance: IVABRADINE
     Indication: TACHYARRHYTHMIA
     Dosage: UNK
     Route: 065
  7. FLECAINIDE [Concomitant]
     Active Substance: FLECAINIDE
     Indication: TACHYARRHYTHMIA

REACTIONS (5)
  - Drug effective for unapproved indication [Unknown]
  - Drug ineffective for unapproved indication [Unknown]
  - Adverse drug reaction [Unknown]
  - Off label use [Unknown]
  - Therapeutic product effect incomplete [Unknown]
